FAERS Safety Report 26053293 (Version 1)
Quarter: 2025Q4

REPORT INFORMATION
  Report Type: Spontaneous
  Country: US (occurrence: None)
  Receive Date: 20251115
  Receipt Date: 20251115
  Transmission Date: 20260119
  Serious: Yes (Hospitalization)
  Sender: FDA-CTU
  Company Number: None

PATIENT
  Age: 48 Year
  Sex: Male
  Weight: 85.1 kg

DRUGS (6)
  1. CYCLOPHOSPHAMIDE [Suspect]
     Active Substance: CYCLOPHOSPHAMIDE
     Dates: end: 20251012
  2. CYTARABINE [Suspect]
     Active Substance: CYTARABINE
     Dates: end: 20251103
  3. SPRYCEL [Suspect]
     Active Substance: DASATINIB
     Dates: end: 20250722
  4. DEXAMETHASONE [Suspect]
     Active Substance: DEXAMETHASONE
     Dates: end: 20251103
  5. METHOTREXATE [Suspect]
     Active Substance: METHOTREXATE
     Dates: end: 20251030
  6. PONATINIB [Suspect]
     Active Substance: PONATINIB
     Dates: end: 20251102

REACTIONS (1)
  - Febrile neutropenia [None]

NARRATIVE: CASE EVENT DATE: 20251103
